FAERS Safety Report 16874179 (Version 1)
Quarter: 2019Q4

REPORT INFORMATION
  Report Type: Spontaneous
  Country: US (occurrence: US)
  Receive Date: 20191001
  Receipt Date: 20191001
  Transmission Date: 20200122
  Serious: Yes (Hospitalization, Other)
  Sender: FDA-Public Use
  Company Number: US-ASTRAZENECA-2019SF35359

PATIENT
  Age: 62 Year
  Sex: Male
  Weight: 108.9 kg

DRUGS (11)
  1. AMLODIPINE [Concomitant]
     Active Substance: AMLODIPINE BESYLATE
     Indication: HYPERTENSION
     Dosage: 10.0MG UNKNOWN
  2. MAGNESIUM [Concomitant]
     Active Substance: MAGNESIUM
  3. DOXAZOSIN [Concomitant]
     Active Substance: DOXAZOSIN MESYLATE
     Indication: HYPERTENSION
  4. CARVEDILOL. [Concomitant]
     Active Substance: CARVEDILOL
     Indication: HYPERTENSION
     Dosage: 25.0MG UNKNOWN
  5. ALLOPURINOL. [Concomitant]
     Active Substance: ALLOPURINOL
     Indication: BLOOD URIC ACID ABNORMAL
     Dosage: 200.0MG UNKNOWN
  6. LOSARTAN. [Concomitant]
     Active Substance: LOSARTAN
     Indication: HYPERTENSION
     Dosage: 25.0MG UNKNOWN
  7. REPATHA [Concomitant]
     Active Substance: EVOLOCUMAB
     Indication: BLOOD CHOLESTEROL ABNORMAL
     Dosage: 140.0MG UNKNOWN
  8. POTASSIUM [Concomitant]
     Active Substance: POTASSIUM
  9. FISH OIL [Concomitant]
     Active Substance: FISH OIL
  10. BRILINTA [Suspect]
     Active Substance: TICAGRELOR
     Indication: COAGULOPATHY
     Route: 048
     Dates: start: 201906
  11. HUMIRA [Suspect]
     Active Substance: ADALIMUMAB
     Indication: RHEUMATOID ARTHRITIS
     Route: 058
     Dates: start: 201902

REACTIONS (8)
  - Temperature intolerance [Unknown]
  - Arthralgia [Not Recovered/Not Resolved]
  - Myocardial infarction [Recovered/Resolved]
  - Anxiety [Unknown]
  - Injection site bruising [Unknown]
  - Arterial occlusive disease [Recovered/Resolved]
  - Coronary artery occlusion [Unknown]
  - Dizziness [Unknown]

NARRATIVE: CASE EVENT DATE: 201906
